FAERS Safety Report 15656238 (Version 1)
Quarter: 2018Q4

REPORT INFORMATION
  Report Type: Spontaneous
  Country: GB (occurrence: GB)
  Receive Date: 20181126
  Receipt Date: 20181126
  Transmission Date: 20190205
  Serious: Yes (Life-Threatening)
  Sender: FDA-Public Use
  Company Number: GB-LPDUSPRD-20182204

PATIENT
  Age: 51 Year
  Sex: Female
  Weight: 126.6 kg

DRUGS (1)
  1. FERINJECT [Suspect]
     Active Substance: FERRIC CARBOXYMALTOSE
     Dosage: 1 GM
     Route: 042
     Dates: start: 20181029, end: 20181029

REACTIONS (5)
  - Flushing [Unknown]
  - Wheezing [Unknown]
  - Bronchospasm [Unknown]
  - Dyspnoea [Unknown]
  - Feeling hot [Unknown]

NARRATIVE: CASE EVENT DATE: 20181029
